FAERS Safety Report 7196894-X (Version None)
Quarter: 2010Q4

REPORT INFORMATION
  Report Type: 
  Country: None (occurrence: None)
  Receive Date: 20101223
  Receipt Date: 20101213
  Transmission Date: 20110411
  Serious: Yes (Hospitalization)
  Sender: FDA-Public Use
  Company Number: JP-PFIZER INC-2010169344

PATIENT
  Age: 80 Year
  Sex: Female

DRUGS (3)
  1. CELECOX [Suspect]
     Dosage: UNK
     Route: 048
  2. RECALBON [Concomitant]
     Indication: OSTEOPOROSIS
     Dosage: 1 MG, UID/QD
     Route: 048
     Dates: start: 20090701
  3. STEROID ANTIBACTERIALS [Concomitant]
     Route: 048

REACTIONS (2)
  - GINGIVAL INFECTION [None]
  - TOOTH EXTRACTION [None]
